FAERS Safety Report 8945190 (Version 3)
Quarter: 2013Q1

REPORT INFORMATION
  Report Type: Spontaneous
  Country: US (occurrence: US)
  Receive Date: 20121205
  Receipt Date: 20130204
  Transmission Date: 20140127
  Serious: No
  Sender: FDA-Public Use
  Company Number: US-PFIZER INC-2012304670

PATIENT
  Age: 59 Year
  Sex: Male

DRUGS (1)
  1. CELEBREX [Suspect]
     Indication: ARTHRALGIA
     Dosage: 200 MG, 1X/DAY
     Route: 048
     Dates: start: 20121113, end: 20121113

REACTIONS (6)
  - Hypersensitivity [Recovering/Resolving]
  - Blister [Recovering/Resolving]
  - Penile blister [Recovering/Resolving]
  - Burns second degree [Recovering/Resolving]
  - Pruritus [Recovering/Resolving]
  - Swelling [Recovering/Resolving]
